FAERS Safety Report 18959429 (Version 3)
Quarter: 2024Q4

REPORT INFORMATION
  Report Type: Spontaneous
  Country: US (occurrence: US)
  Receive Date: 20210302
  Receipt Date: 20241213
  Transmission Date: 20250115
  Serious: Yes (Life-Threatening)
  Sender: SANOFI AVENTIS
  Company Number: US-SA-SAC20210226000545

PATIENT
  Age: 46 Year
  Sex: Female
  Weight: 64.55 kg

DRUGS (1)
  1. DUPILUMAB [Suspect]
     Active Substance: DUPILUMAB
     Indication: Dermatitis atopic
     Dosage: 300 MG, QOW
     Route: 058

REACTIONS (3)
  - Blister [Unknown]
  - Product dose omission issue [Unknown]
  - Dermatitis atopic [Unknown]

NARRATIVE: CASE EVENT DATE: 20210201
